FAERS Safety Report 14846782 (Version 1)
Quarter: 2018Q2

REPORT INFORMATION
  Report Type: Spontaneous
  Country: US (occurrence: US)
  Receive Date: 20180418
  Receipt Date: 20180418
  Transmission Date: 20180711
  Serious: No
  Sender: FDA-Public Use
  Company Number: None

PATIENT
  Age: 62 Year
  Sex: Male

DRUGS (1)
  1. HUMIRA [Suspect]
     Active Substance: ADALIMUMAB
     Indication: CROHN^S DISEASE
     Dosage: 40MG EVERY 2 WEEKS
     Route: 058
     Dates: start: 20161104

REACTIONS (3)
  - Pneumonia [None]
  - Coma [None]
  - Pneumothorax [None]

NARRATIVE: CASE EVENT DATE: 20180301
